FAERS Safety Report 8926355 (Version 3)
Quarter: 2013Q1

REPORT INFORMATION
  Report Type: Spontaneous
  Country: PL (occurrence: PL)
  Receive Date: 20121127
  Receipt Date: 20130326
  Transmission Date: 20140127
  Serious: Yes (Other)
  Sender: FDA-Public Use
  Company Number: PL-BAYER-2012-121072

PATIENT
  Age: 42 Year
  Sex: Female
  Weight: 56 kg

DRUGS (2)
  1. QLAIRA [Suspect]
     Dosage: 1 DF, QD
     Route: 048
     Dates: start: 20121001, end: 20121112
  2. QLAIRA [Suspect]
     Dosage: 1 DF, QD

REACTIONS (1)
  - Ventricular arrhythmia [Recovered/Resolved]
